FAERS Safety Report 8602238-6 (Version None)
Quarter: 2012Q3

REPORT INFORMATION
  Report Type: 
  Country: None (occurrence: None)
  Receive Date: 20120817
  Receipt Date: 20120810
  Transmission Date: 20120928
  Serious: Yes (Hospitalization, Other)
  Sender: FDA-Public Use
  Company Number: US-PFIZER INC-2004112725

PATIENT
  Age: 67 Year
  Sex: Female
  Weight: 74 kg

DRUGS (8)
  1. PREMPRO [Suspect]
     Indication: HORMONE REPLACEMENT THERAPY
     Dosage: 0.625/2.5MG
     Route: 048
     Dates: start: 19980101, end: 20010101
  2. PREMARIN [Suspect]
     Indication: HORMONE REPLACEMENT THERAPY
     Dosage: 0.625 MG, UNK
     Route: 048
     Dates: start: 19830101, end: 19980101
  3. PROVERA [Suspect]
     Indication: HORMONE REPLACEMENT THERAPY
     Dosage: 10 MG, UNK
     Route: 048
     Dates: start: 19830101, end: 19980101
  4. ATENOLOL [Concomitant]
     Indication: HYPERTENSION
     Dosage: 100 MG, 1X/DAY
     Dates: start: 19890101
  5. POTASSIUM CHLORIDE [Concomitant]
     Indication: MINERAL SUPPLEMENTATION
     Dosage: UNK
     Dates: start: 20000101, end: 20080101
  6. PREMPHASE 14/14 [Suspect]
     Indication: HORMONE REPLACEMENT THERAPY
     Dosage: UNK
     Route: 048
  7. ZANTAC [Concomitant]
     Indication: GASTROOESOPHAGEAL REFLUX DISEASE
     Dosage: UNK
     Dates: start: 19950101
  8. LASIX [Concomitant]
     Indication: FLUID RETENTION
     Dosage: 40 MG, 1X/DAY
     Dates: start: 20000101

REACTIONS (2)
  - BREAST CANCER FEMALE [None]
  - EMOTIONAL DISTRESS [None]
